FAERS Safety Report 5021717-4 (Version None)
Quarter: 2006Q2

REPORT INFORMATION
  Report Type: 
  Country: None (occurrence: None)
  Receive Date: 20060605
  Receipt Date: 20060522
  Transmission Date: 20061013
  Serious: Yes (Other)
  Sender: FDA-Public Use
  Company Number: 163-21880-06040736

PATIENT
  Age: 70 Year
  Sex: Female

DRUGS (4)
  1. REVLIMID [Suspect]
     Indication: ACUTE MYELOID LEUKAEMIA
     Dosage: 10 MG, DAILY, ORAL
     Route: 048
     Dates: start: 20060404, end: 20060406
  2. ACIPHEX [Concomitant]
  3. PREDNISONE TAB [Concomitant]
  4. TAXOL [Concomitant]

REACTIONS (16)
  - ASTHENIA [None]
  - DEAFNESS [None]
  - DRY MOUTH [None]
  - DYSSTASIA [None]
  - FEELING ABNORMAL [None]
  - HEADACHE [None]
  - INSOMNIA [None]
  - NAUSEA [None]
  - NECK PAIN [None]
  - OEDEMA PERIPHERAL [None]
  - PAIN [None]
  - PRURITUS [None]
  - RASH GENERALISED [None]
  - SOMNOLENCE [None]
  - THINKING ABNORMAL [None]
  - URTICARIA [None]
